FAERS Safety Report 8431479-6 (Version None)
Quarter: 2012Q2

REPORT INFORMATION
  Report Type: 
  Country: None (occurrence: None)
  Receive Date: 20120607
  Receipt Date: 20120607
  Transmission Date: 20120825
  Serious: Yes (Life-Threatening, Hospitalization, Disabling)
  Sender: FDA-Public Use
  Company Number: None

PATIENT
  Age: 34 Year
  Sex: Female
  Weight: 58.9676 kg

DRUGS (1)
  1. CEFDINIR [Suspect]
     Indication: INFECTION
     Dosage: 1 CAP 12 HRS TWICE DAILY
     Dates: start: 20080101

REACTIONS (6)
  - STRESS [None]
  - RASH [None]
  - PAIN [None]
  - FURUNCLE [None]
  - CHEST PAIN [None]
  - ANXIETY [None]
